FAERS Safety Report 17291505 (Version 1)
Quarter: 2020Q1

REPORT INFORMATION
  Report Type: Report from Study
  Country: US (occurrence: US)
  Receive Date: 20200121
  Receipt Date: 20200121
  Transmission Date: 20200409
  Serious: Yes (Hospitalization)
  Sender: FDA-Public Use
  Company Number: US-BAYER-2019-187926

PATIENT
  Age: 59 Year
  Sex: Female

DRUGS (2)
  1. STIVARGA [Suspect]
     Active Substance: REGORAFENIB
     Indication: COLORECTAL CANCER
     Dosage: 160 MG DAILY BY MOUTH
     Route: 048
     Dates: start: 20191012, end: 20191026
  2. STIVARGA [Suspect]
     Active Substance: REGORAFENIB
     Indication: COLORECTAL CANCER
     Dosage: DAILY DOSE 80 MG FOR 21 DAYS OF 28 DAY CYCLE
     Route: 048
     Dates: start: 20191126

REACTIONS (6)
  - Asthenia [Recovering/Resolving]
  - Fatigue [Not Recovered/Not Resolved]
  - Pre-existing condition improved [Recovering/Resolving]
  - Gait inability [None]
  - Pyrexia [Recovered/Resolved]
  - Fatigue [Not Recovered/Not Resolved]

NARRATIVE: CASE EVENT DATE: 201910
